FAERS Safety Report 22217882 (Version 6)
Quarter: 2024Q1

REPORT INFORMATION
  Report Type: Report from Study
  Country: BR (occurrence: BR)
  Receive Date: 20230417
  Receipt Date: 20240205
  Transmission Date: 20240410
  Serious: Yes (Other)
  Sender: FDA-Public Use
  Company Number: BR-002147023-NVSC2023BR085714

PATIENT
  Age: 56 Year
  Sex: Male
  Weight: 80 kg

DRUGS (9)
  1. TAFINLAR [Suspect]
     Active Substance: DABRAFENIB MESYLATE
     Indication: Metastatic malignant melanoma
     Dosage: UNK (MFG DATE: FEB 2022)
     Route: 065
     Dates: start: 20230313
  2. TAFINLAR [Suspect]
     Active Substance: DABRAFENIB MESYLATE
     Dosage: UNK
     Route: 065
  3. TAFINLAR [Suspect]
     Active Substance: DABRAFENIB MESYLATE
     Dosage: UNK
     Route: 065
  4. MEKINIST [Suspect]
     Active Substance: TRAMETINIB DIMETHYL SULFOXIDE
     Indication: Metastatic malignant melanoma
     Dosage: UNK (MFG DATE: SEP 2021)
     Route: 065
     Dates: start: 20230313
  5. MEKINIST [Suspect]
     Active Substance: TRAMETINIB DIMETHYL SULFOXIDE
     Dosage: UNK
     Route: 065
  6. MEKINIST [Suspect]
     Active Substance: TRAMETINIB DIMETHYL SULFOXIDE
     Dosage: UNK
     Route: 065
  7. MEKINIST [Suspect]
     Active Substance: TRAMETINIB DIMETHYL SULFOXIDE
     Dosage: UNK
     Route: 065
  8. MEKINIST [Suspect]
     Active Substance: TRAMETINIB DIMETHYL SULFOXIDE
     Dosage: UNK
     Route: 065
  9. LINAGLIPTIN [Concomitant]
     Active Substance: LINAGLIPTIN
     Indication: Blood glucose abnormal
     Dosage: UNK
     Route: 065

REACTIONS (38)
  - Macular ischaemia [Recovered/Resolved]
  - Vitreous detachment [Unknown]
  - Visual impairment [Unknown]
  - Dry skin [Unknown]
  - Chest discomfort [Recovered/Resolved]
  - Abdominal distension [Not Recovered/Not Resolved]
  - Blood glucose increased [Unknown]
  - Anxiety [Unknown]
  - Wound [Unknown]
  - Skin haemorrhage [Unknown]
  - Palpitations [Recovered/Resolved]
  - Skin laceration [Unknown]
  - Skin atrophy [Unknown]
  - Vein disorder [Unknown]
  - Amnesia [Unknown]
  - Weight increased [Unknown]
  - Weight decreased [Recovered/Resolved]
  - Diarrhoea [Not Recovered/Not Resolved]
  - Malaise [Unknown]
  - Muscle atrophy [Recovering/Resolving]
  - Abdominal discomfort [Not Recovered/Not Resolved]
  - Flatulence [Not Recovered/Not Resolved]
  - Faeces hard [Not Recovered/Not Resolved]
  - Skin lesion [Unknown]
  - Spinal disorder [Unknown]
  - Pollakiuria [Unknown]
  - Gait inability [Not Recovered/Not Resolved]
  - Pyrexia [Recovered/Resolved]
  - Dyspnoea [Recovered/Resolved]
  - Asthenia [Recovering/Resolving]
  - Localised infection [Recovering/Resolving]
  - Abdominal pain upper [Not Recovered/Not Resolved]
  - Pain of skin [Unknown]
  - Fatigue [Recovered/Resolved]
  - Lymphadenopathy [Unknown]
  - Product availability issue [Unknown]
  - Chest discomfort [Unknown]
  - Insomnia [Unknown]

NARRATIVE: CASE EVENT DATE: 20230301
